FAERS Safety Report 9323960 (Version 2)
Quarter: 2013Q3

REPORT INFORMATION
  Report Type: Spontaneous
  Country: US (occurrence: US)
  Receive Date: 20130603
  Receipt Date: 20130711
  Transmission Date: 20140515
  Serious: Yes (Congenital Anomaly, Other)
  Sender: FDA-Public Use
  Company Number: US-PFIZER INC-2013164398

PATIENT
  Sex: Male

DRUGS (10)
  1. ZOLOFT [Suspect]
     Indication: DEPRESSION
     Dosage: UNK
     Route: 064
     Dates: start: 2005, end: 200707
  2. TUMS [Concomitant]
     Dosage: UNK
     Route: 064
  3. PEPTO-BISMOL [Concomitant]
     Dosage: UNK
     Route: 064
  4. IMODIUM [Concomitant]
     Dosage: UNK
     Route: 064
  5. TYLENOL [Concomitant]
     Dosage: UNK
     Route: 064
  6. TYLENOL COLD + FLU [Concomitant]
     Dosage: UNK
     Route: 064
  7. MUCINEX [Concomitant]
     Dosage: UNK
     Route: 064
  8. PRILOSEC [Concomitant]
     Dosage: UNK
     Route: 064
  9. ZYRTEC [Concomitant]
     Dosage: UNK
     Route: 064
  10. CLARITIN [Concomitant]
     Dosage: UNK
     Route: 064

REACTIONS (5)
  - Maternal exposure during pregnancy [Unknown]
  - Renal aplasia [Unknown]
  - Autism [Unknown]
  - Developmental delay [Unknown]
  - Speech disorder [Unknown]
